FAERS Safety Report 16761250 (Version 1)
Quarter: 2019Q3

REPORT INFORMATION
  Report Type: Spontaneous
  Country: US (occurrence: US)
  Receive Date: 20190830
  Receipt Date: 20190830
  Transmission Date: 20191005
  Serious: No
  Sender: FDA-Public Use
  Company Number: US-ANIPHARMA-2019-US-014770

PATIENT
  Age: 64 Year
  Sex: Female

DRUGS (1)
  1. ARIMIDEX [Suspect]
     Active Substance: ANASTROZOLE
     Indication: PRODUCT USED FOR UNKNOWN INDICATION
     Dosage: 1/2 -1 TABLET DAILY
     Route: 048
     Dates: start: 20190429

REACTIONS (3)
  - Abdominal discomfort [Recovered/Resolved]
  - Off label use [Not Recovered/Not Resolved]
  - Nausea [Recovered/Resolved]

NARRATIVE: CASE EVENT DATE: 201906
